FAERS Safety Report 8975123 (Version 2)
Quarter: 2013Q2

REPORT INFORMATION
  Report Type: Spontaneous
  Country: US (occurrence: US)
  Receive Date: 20121219
  Receipt Date: 20130606
  Transmission Date: 20140414
  Serious: No
  Sender: FDA-Public Use
  Company Number: US-AMGEN-USASP2012076239

PATIENT
  Age: 74 Year
  Sex: Female
  Weight: 31.75 kg

DRUGS (6)
  1. DENOSUMAB [Suspect]
     Indication: OSTEOPOROSIS
     Dosage: 60 MG, Q6MO
     Route: 058
     Dates: start: 201110, end: 201110
  2. SYNTHROID [Concomitant]
     Dosage: 88 MUG, UNK
     Route: 048
  3. MULTIVITAMINS [Concomitant]
     Dosage: UNK
     Route: 048
  4. VITAMIN D [Concomitant]
     Indication: SUPPLEMENTATION THERAPY
     Dosage: 1000 IU, UNK
     Route: 048
  5. NEXIUM [Concomitant]
     Indication: GASTROINTESTINAL DISORDER
     Dosage: 40 MG, QD
     Route: 048
  6. ESTROGENS [Concomitant]
     Dosage: UNK UNK, 2 TIMES/WK
     Route: 061

REACTIONS (3)
  - Herpes zoster [Recovered/Resolved]
  - Urinary tract infection [Recovered/Resolved]
  - Hypergammaglobulinaemia benign monoclonal [Unknown]
